FAERS Safety Report 5456936-6 (Version None)
Quarter: 2007Q3

REPORT INFORMATION
  Report Type: 
  Country: None (occurrence: None)
  Receive Date: 20070917
  Receipt Date: 20070917
  Transmission Date: 20080115
  Serious: No
  Sender: FDA-Public Use
  Company Number: None

PATIENT
  Sex: Female
  Weight: 176.9028 kg

DRUGS (2)
  1. PERCODAN [Suspect]
     Indication: DIABETIC NEUROPATHY
     Dosage: 325/4.5 ONCE TID PO
     Route: 048
     Dates: start: 20040101, end: 20050101
  2. PERCODAN [Suspect]
     Indication: OSTEOARTHRITIS
     Dosage: 325/4.5 ONCE TID PO
     Route: 048
     Dates: start: 20040101, end: 20050101

REACTIONS (2)
  - DRUG EFFECT DECREASED [None]
  - PHARMACEUTICAL PRODUCT COMPLAINT [None]
